FAERS Safety Report 25243743 (Version 2)
Quarter: 2025Q2

REPORT INFORMATION
  Report Type: Spontaneous
  Country: FR (occurrence: FR)
  Receive Date: 20250428
  Receipt Date: 20250505
  Transmission Date: 20250717
  Serious: Yes (Other)
  Sender: AUROBINDO
  Company Number: FR-MLMSERVICE-20250408-PI466864-00249-1

PATIENT
  Age: 43 Year
  Sex: Female

DRUGS (8)
  1. OXALIPLATIN [Interacting]
     Active Substance: OXALIPLATIN
     Indication: Colorectal cancer metastatic
     Route: 065
     Dates: start: 202312
  2. IRINOTECAN [Interacting]
     Active Substance: IRINOTECAN
     Indication: Colorectal cancer metastatic
     Route: 042
     Dates: start: 202312
  3. LEUCOVORIN [Interacting]
     Active Substance: LEUCOVORIN\LEUCOVORIN CALCIUM
     Indication: Colorectal cancer metastatic
     Route: 042
     Dates: start: 202312
  4. FLUOROURACIL [Interacting]
     Active Substance: FLUOROURACIL
     Indication: Colorectal cancer metastatic
     Route: 042
     Dates: start: 202312
  5. ENOXAPARIN [Concomitant]
     Active Substance: ENOXAPARIN
     Indication: Anticoagulant therapy
     Dosage: 4000 INTERNATIONAL UNIT, ONCE A DAY
     Route: 065
     Dates: start: 20231116, end: 20231121
  6. ACETAMINOPHEN [Concomitant]
     Active Substance: ACETAMINOPHEN
     Indication: Product used for unknown indication
     Dosage: THREE TIMES DAILY
     Route: 065
  7. TRAMADOL [Concomitant]
     Active Substance: TRAMADOL
     Indication: Product used for unknown indication
     Dosage: 50 MILLIGRAM, 3 TIMES A DAY (THREE TIMES DAILY)
     Route: 065
  8. FLUTICASONE [Concomitant]
     Active Substance: FLUTICASONE
     Indication: Rhinitis allergic
     Route: 065

REACTIONS (4)
  - Hepatic cytolysis [Unknown]
  - Cholestasis [Unknown]
  - Drug interaction [Unknown]
  - Drug ineffective [Unknown]

NARRATIVE: CASE EVENT DATE: 20230101
